FAERS Safety Report 5931822-3 (Version None)
Quarter: 2008Q4

REPORT INFORMATION
  Report Type: 
  Country: None (occurrence: None)
  Receive Date: 20081027
  Receipt Date: 20081017
  Transmission Date: 20090506
  Serious: Yes (Other)
  Sender: FDA-Public Use
  Company Number: US-PFIZER INC-2008050117

PATIENT
  Sex: Male
  Weight: 104.54 kg

DRUGS (4)
  1. CHANTIX [Suspect]
     Indication: SMOKING CESSATION THERAPY
     Dates: start: 20080501
  2. VITAMINS [Concomitant]
  3. NEXIUM [Concomitant]
     Dosage: DAILY DOSE:40MG
  4. HERBAL PREPARATION [Concomitant]

REACTIONS (2)
  - ARTHRALGIA [None]
  - JOINT SWELLING [None]
